FAERS Safety Report 5660719-1 (Version None)
Quarter: 2008Q1

REPORT INFORMATION
  Report Type: 
  Country: None (occurrence: None)
  Receive Date: 20080311
  Receipt Date: 20080229
  Transmission Date: 20080703
  Serious: Yes (Other)
  Sender: FDA-Public Use
  Company Number: DE-GENENTECH-257275

PATIENT

DRUGS (5)
  1. MABTHERA [Suspect]
     Indication: RHEUMATOID ARTHRITIS
  2. STEROID (NAME UNKNOWN) [Interacting]
     Indication: DRUG USE FOR UNKNOWN INDICATION
  3. CAPTOPRIL [Interacting]
     Indication: DRUG USE FOR UNKNOWN INDICATION
  4. BETA BLOCKER NOS [Interacting]
     Indication: DRUG USE FOR UNKNOWN INDICATION
  5. URSODIOL [Interacting]
     Indication: DRUG USE FOR UNKNOWN INDICATION

REACTIONS (1)
  - TRANSAMINASES INCREASED [None]
